FAERS Safety Report 8458065-6 (Version None)
Quarter: 2012Q2

REPORT INFORMATION
  Report Type: 
  Country: None (occurrence: None)
  Receive Date: 20120622
  Receipt Date: 20120615
  Transmission Date: 20120825
  Serious: Yes (Other)
  Sender: FDA-Public Use
  Company Number: US-BAYER-2012-042464

PATIENT
  Age: 52 Year
  Sex: Female

DRUGS (14)
  1. ADALAT [Concomitant]
     Dosage: 30 MG, UNK
  2. EPOETIN ALFA [Concomitant]
  3. FOLIC ACID [Concomitant]
     Dosage: 1 MG, UNK
  4. ASPIRIN [Concomitant]
     Dosage: 80 MG, UNK
  5. MAGNEVIST [Suspect]
     Indication: ANGIOGRAM
     Dosage: UNK
     Dates: start: 20050930, end: 20050930
  6. GADOLINIUM IN UNSPECIFIED DRUG [Suspect]
     Indication: ANGIOGRAM
     Dosage: UNK
     Dates: start: 20060404, end: 20060404
  7. NORMODYNE [Concomitant]
  8. MAGNEVIST [Suspect]
     Dosage: UNK
     Dates: start: 20051001, end: 20051001
  9. GADOLINIUM IN UNSPECIFIED DRUG [Suspect]
     Indication: NUCLEAR MAGNETIC RESONANCE IMAGING
  10. LOPRESSOR [Concomitant]
  11. TOPROL-XL [Concomitant]
     Dosage: 50 MG, UNK
  12. LASIX [Concomitant]
     Dosage: 40 MG, UNK
  13. VASOTEC [Concomitant]
     Dosage: 5 MG, UNK
  14. VITAMIN B-12 [Concomitant]

REACTIONS (15)
  - NEPHROGENIC SYSTEMIC FIBROSIS [None]
  - PEAU D'ORANGE [None]
  - ANHEDONIA [None]
  - EMOTIONAL DISTRESS [None]
  - GENERAL PHYSICAL HEALTH DETERIORATION [None]
  - SKIN TIGHTNESS [None]
  - PAIN [None]
  - ANXIETY [None]
  - SKIN DISORDER [None]
  - SKIN FIBROSIS [None]
  - PRURITUS [None]
  - JOINT CONTRACTURE [None]
  - INJURY [None]
  - DEFORMITY [None]
  - SCAR [None]
